FAERS Safety Report 9907573 (Version 1)
Quarter: 2014Q1

REPORT INFORMATION
  Report Type: Report from Study
  Country: US (occurrence: US)
  Receive Date: 20140218
  Receipt Date: 20140218
  Transmission Date: 20141002
  Serious: Yes (Death, Hospitalization)
  Sender: FDA-Public Use
  Company Number: US-ROCHE-1347540

PATIENT
  Age: 74 Year
  Sex: Female

DRUGS (1)
  1. CAPECITABINE [Suspect]
     Indication: TRANSITIONAL CELL CARCINOMA
     Dosage: 2 DIVIDED DOSES DAILY FOR 1 WEEK
     Route: 048

REACTIONS (2)
  - Pulmonary fibrosis [Fatal]
  - Infection [Unknown]
